FAERS Safety Report 6058183-6 (Version None)
Quarter: 2009Q1

REPORT INFORMATION
  Report Type: 
  Country: None (occurrence: None)
  Receive Date: 20090128
  Receipt Date: 20090128
  Transmission Date: 20090719
  Serious: Yes (Death, Life-Threatening, Hospitalization, Disabling, Congenital Anomaly, Other)
  Sender: FDA-Public Use
  Company Number: None

PATIENT
  Age: 49 Year
  Sex: Male
  Weight: 57.6068 kg

DRUGS (1)
  1. DILANTIN [Suspect]
     Indication: GRAND MAL CONVULSION
     Dates: start: 20030910, end: 20030910

REACTIONS (6)
  - CEREBROVASCULAR ACCIDENT [None]
  - EMBOLISM [None]
  - INJURY [None]
  - PAIN [None]
  - PAIN IN EXTREMITY [None]
  - SKIN DISCOLOURATION [None]
